FAERS Safety Report 22240283 (Version 1)
Quarter: 2023Q2

REPORT INFORMATION
  Report Type: Spontaneous
  Country: US (occurrence: US)
  Receive Date: 20230421
  Receipt Date: 20230421
  Transmission Date: 20230721
  Serious: No
  Sender: FDA-Public Use
  Company Number: US-ALLERGAN-2217345US

PATIENT
  Sex: Female
  Weight: 81.646 kg

DRUGS (12)
  1. RESTASIS [Suspect]
     Active Substance: CYCLOSPORINE
     Indication: Dry eye
     Dosage: 2 GTT, QD
     Route: 047
     Dates: start: 2018
  2. Equate [Concomitant]
     Indication: Dry eye
     Route: 047
  3. METFORMIN [Concomitant]
     Active Substance: METFORMIN HYDROCHLORIDE
     Indication: Diabetes mellitus
  4. ATORVASTATIN [Concomitant]
     Active Substance: ATORVASTATIN
     Indication: Blood cholesterol
  5. VALSARTAN [Concomitant]
     Active Substance: VALSARTAN
     Indication: Hypertension
  6. SERTRALINE [Concomitant]
     Active Substance: SERTRALINE HYDROCHLORIDE
     Indication: Depression
  7. Covid-19 vaccine [Concomitant]
     Indication: COVID-19 immunisation
     Dosage: UNK
     Route: 030
     Dates: start: 20220524, end: 20220524
  8. Covid-19 vaccine [Concomitant]
     Dosage: UNK
     Route: 030
     Dates: start: 20211026, end: 20211026
  9. Covid-19 vaccine [Concomitant]
     Dosage: UNK
     Route: 030
     Dates: start: 20210317, end: 20210317
  10. Covid-19 vaccine [Concomitant]
     Dosage: UNK
     Route: 030
     Dates: start: 20210224, end: 20210224
  11. IRON [Concomitant]
     Active Substance: IRON
     Indication: Fatigue
  12. VITAMIN B12 [Concomitant]
     Active Substance: CYANOCOBALAMIN
     Indication: Fatigue

REACTIONS (3)
  - Body height decreased [Unknown]
  - Lacrimation increased [Recovering/Resolving]
  - Drug ineffective [Recovering/Resolving]

NARRATIVE: CASE EVENT DATE: 20180101
